FAERS Safety Report 7276341-X (Version None)
Quarter: 2011Q1

REPORT INFORMATION
  Report Type: 
  Country: None (occurrence: None)
  Receive Date: 20110204
  Receipt Date: 20110126
  Transmission Date: 20110831
  Serious: Yes (Hospitalization)
  Sender: FDA-Public Use
  Company Number: US-ASTRAZENECA-2010SE50376

PATIENT
  Age: 679 Month
  Sex: Female

DRUGS (1)
  1. NEXIUM [Suspect]
     Route: 048

REACTIONS (14)
  - ILEOSTOMY [None]
  - URINARY TRACT INFECTION [None]
  - MALAISE [None]
  - HYPOTENSION [None]
  - DRUG DOSE OMISSION [None]
  - LOSS OF CONSCIOUSNESS [None]
  - CHEST PAIN [None]
  - OESOPHAGEAL SPASM [None]
  - INTESTINAL OBSTRUCTION [None]
  - HIATUS HERNIA [None]
  - APPARENT DEATH [None]
  - DEHYDRATION [None]
  - ABDOMINAL DISCOMFORT [None]
  - BRONCHITIS [None]
